FAERS Safety Report 7408276-3 (Version None)
Quarter: 2011Q2

REPORT INFORMATION
  Report Type: 
  Country: None (occurrence: None)
  Receive Date: 20110412
  Receipt Date: 20110315
  Transmission Date: 20111010
  Serious: Yes (Hospitalization, Other)
  Sender: FDA-Public Use
  Company Number: US-BAYER-2011-003126

PATIENT
  Age: 32 Year
  Sex: Female
  Weight: 122 kg

DRUGS (4)
  1. YAZ [Suspect]
     Indication: PRODUCT USED FOR UNKNOWN INDICATION
     Dosage: UNK
     Dates: start: 20000101, end: 20040101
  2. YASMIN [Suspect]
     Indication: PREMENSTRUAL SYNDROME
  3. YASMIN [Suspect]
     Indication: ORAL CONTRACEPTION
     Dosage: UNK
     Dates: start: 20000101, end: 20040101
  4. YASMIN [Suspect]
     Indication: MENSTRUATION IRREGULAR

REACTIONS (11)
  - EMOTIONAL DISTRESS [None]
  - ANXIETY [None]
  - GALLBLADDER DISORDER [None]
  - DIARRHOEA [None]
  - JOINT SWELLING [None]
  - PAIN [None]
  - ABDOMINAL PAIN [None]
  - NAUSEA [None]
  - VOMITING [None]
  - DEEP VEIN THROMBOSIS [None]
  - ARTHRALGIA [None]
